FAERS Safety Report 15852910 (Version 4)
Quarter: 2024Q1

REPORT INFORMATION
  Report Type: Spontaneous
  Country: PT (occurrence: PT)
  Receive Date: 20190122
  Receipt Date: 20240315
  Transmission Date: 20240410
  Serious: Yes (Death, Hospitalization, Other)
  Sender: FDA-Public Use
  Company Number: PT-AUROBINDO-AUR-APL-2019-002645

PATIENT
  Age: 51 Year
  Sex: Female

DRUGS (9)
  1. CEFTRIAXONE [Suspect]
     Active Substance: CEFTRIAXONE\CEFTRIAXONE SODIUM
     Indication: Product used for unknown indication
     Dosage: UNK
     Route: 065
  2. MYCOPHENOLATE MOFETIL [Suspect]
     Active Substance: MYCOPHENOLATE MOFETIL
     Indication: Renal transplant
     Dosage: 1000 MG,ONCE A DAY, QD
     Route: 065
  3. MYCOPHENOLATE MOFETIL [Suspect]
     Active Substance: MYCOPHENOLATE MOFETIL
     Dosage: 2000 MG, QD
     Route: 065
  4. ACETAMINOPHEN [Suspect]
     Active Substance: ACETAMINOPHEN
     Indication: Back pain
     Dosage: 1000 MG, UNK
     Route: 065
  5. TACROLIMUS [Suspect]
     Active Substance: TACROLIMUS
     Indication: Renal transplant
     Dosage: 7.5 MG, QD
     Route: 065
  6. PREDNISOLONE [Suspect]
     Active Substance: PREDNISOLONE
     Indication: Immunosuppressant drug therapy
     Dosage: UNK
     Route: 065
  7. PREDNISOLONE [Suspect]
     Active Substance: PREDNISOLONE
     Indication: Renal transplant
     Dosage: 7.5 MG,ONCE A DAY, QD
     Route: 065
  8. AZATHIOPRINE [Suspect]
     Active Substance: AZATHIOPRINE
     Indication: Immunosuppressant drug therapy
     Dosage: UNK
     Route: 065
  9. AZATHIOPRINE [Suspect]
     Active Substance: AZATHIOPRINE
     Indication: Renal transplant
     Dosage: 50 MG,ONCE A DAY, QD
     Route: 065

REACTIONS (15)
  - Septic shock [Fatal]
  - Hepatosplenic T-cell lymphoma [Fatal]
  - Spinal cord disorder [Fatal]
  - Metastases to spinal cord [Fatal]
  - Nosocomial infection [Fatal]
  - Treatment failure [Unknown]
  - Condition aggravated [Unknown]
  - Back pain [Unknown]
  - Pancytopenia [Unknown]
  - Pyelonephritis [Unknown]
  - Acute kidney injury [Unknown]
  - Pleural effusion [Unknown]
  - Metabolic acidosis [Unknown]
  - Ascites [Unknown]
  - Tumour lysis syndrome [Unknown]
